FAERS Safety Report 8575669-0 (Version None)
Quarter: 2012Q2

REPORT INFORMATION
  Report Type: 
  Country: None (occurrence: None)
  Receive Date: 20120423
  Receipt Date: 20101025
  Transmission Date: 20120825
  Serious: Yes (Hospitalization)
  Sender: FDA-Public Use
  Company Number: PHHY2010US71955

PATIENT
  Sex: Female
  Weight: 75 kg

DRUGS (5)
  1. FOLIC ACID [Concomitant]
  2. EXJADE [Suspect]
     Indication: SICKLE CELL ANAEMIA
     Dosage: 1500 MG DAILY, ORAL
     Route: 048
     Dates: start: 20100422
  3. HYDREA [Concomitant]
  4. TYLENOL W/ CODEINE [Concomitant]
  5. PERCOCET [Concomitant]

REACTIONS (2)
  - SICKLE CELL ANAEMIA WITH CRISIS [None]
  - DEHYDRATION [None]
